FAERS Safety Report 9198411 (Version 1)
Quarter: 2013Q1

REPORT INFORMATION
  Report Type: Spontaneous
  Country: US (occurrence: None)
  Receive Date: 20130327
  Receipt Date: 20130327
  Transmission Date: 20140127
  Serious: No
  Sender: FDA-Public Use
  Company Number: None

PATIENT
  Age: 59 Year
  Sex: Male
  Weight: 89.72 kg

DRUGS (2)
  1. ROSUVASTATIN [Suspect]
     Route: 048
     Dates: start: 20110518, end: 20130319
  2. PLACEBO [Suspect]
     Route: 048
     Dates: start: 20110518, end: 20130319

REACTIONS (1)
  - Diabetes mellitus [None]
